FAERS Safety Report 4378385-4 (Version None)
Quarter: 2004Q2

REPORT INFORMATION
  Report Type: 
  Country: None (occurrence: None)
  Receive Date: 20040616
  Receipt Date: 20040610
  Transmission Date: 20050107
  Serious: Yes (Hospitalization)
  Sender: FDA-Public Use
  Company Number: CA-MERCK-0406CAN00055

PATIENT

DRUGS (1)
  1. ZETIA [Suspect]
     Route: 048

REACTIONS (1)
  - RHABDOMYOLYSIS [None]
